FAERS Safety Report 14340581 (Version 2)
Quarter: 2018Q1

REPORT INFORMATION
  Report Type: Report from Study
  Country: CA (occurrence: CA)
  Receive Date: 20180101
  Receipt Date: 20180312
  Transmission Date: 20180509
  Serious: Yes (Hospitalization, Other)
  Sender: FDA-Public Use
  Company Number: CA-AMGEN-CANSL2017191445

PATIENT
  Age: 49 Year
  Sex: Male

DRUGS (2)
  1. ENBREL [Suspect]
     Active Substance: ETANERCEPT
     Indication: ANKYLOSING SPONDYLITIS
     Dosage: 50 MG, QWK
     Route: 065
     Dates: start: 20140308
  2. ENBREL [Suspect]
     Active Substance: ETANERCEPT
     Dosage: 50 MG, EVERY 6 DAYS
     Route: 065
     Dates: start: 2017

REACTIONS (15)
  - Diverticulitis [Recovering/Resolving]
  - Muscle spasms [Unknown]
  - Surgery [Unknown]
  - Nasopharyngitis [Recovering/Resolving]
  - Intentional product misuse [Unknown]
  - Internal haemorrhage [Unknown]
  - Ankylosing spondylitis [Unknown]
  - Eye haemorrhage [Recovering/Resolving]
  - Exostosis [Unknown]
  - Sleep disorder due to a general medical condition [Unknown]
  - Polyp [Unknown]
  - Frequent bowel movements [Unknown]
  - Rheumatoid arthritis [Unknown]
  - Eye pain [Unknown]
  - Haematochezia [Unknown]

NARRATIVE: CASE EVENT DATE: 2017
